FAERS Safety Report 9369408 (Version 2)
Quarter: 2013Q3

REPORT INFORMATION
  Report Type: Spontaneous
  Country: JP (occurrence: None)
  Receive Date: 20130621
  Receipt Date: 20130712
  Transmission Date: 20140515
  Serious: Yes (Life-Threatening)
  Sender: FDA-Public Use
  Company Number: TCI2013A03478

PATIENT
  Age: 76 Year
  Sex: Male

DRUGS (11)
  1. LANSAP [Suspect]
     Indication: DRUG THERAPY
     Dosage: 1 CARD (0.5 CAR.2 IN 1 D)
     Route: 048
     Dates: start: 20130608, end: 20130611
  2. DIOVAN (VALSARTAN) [Concomitant]
  3. LENIMEC (ENALAPRIL MALEATE) [Concomitant]
  4. TRYTHMEN (TRICHLORMETHIAZIDE) [Concomitant]
  5. BAYASPIRIN (ACETYLSALICYLIC ACID) (ACETYLSALICYLIC ACID) [Concomitant]
  6. HARNAL D (TAMSULOSIN HYDROCHLORIDE) [Concomitant]
  7. CARBADOGEN (DOXAZOSIN MESILATE) [Concomitant]
  8. CORINAEL CR (NIFEDIPINE) [Concomitant]
  9. DEZOLAM (ETIZOLAM) [Concomitant]
  10. VOGLIBOSE OD (VOGLIBOSE) [Concomitant]
  11. LAC B N (LACTOBACILLUS BIFIDUS, LYOPHILIZED) [Concomitant]

REACTIONS (10)
  - Ileus [None]
  - Portal venous gas [None]
  - Pneumatosis intestinalis [None]
  - Diarrhoea [None]
  - Dehydration [None]
  - Abdominal pain [None]
  - C-reactive protein increased [None]
  - Blood creatine phosphokinase increased [None]
  - Pyrexia [None]
  - Intestinal dilatation [None]
